FAERS Safety Report 8768986 (Version 1)
Quarter: 2012Q4

REPORT INFORMATION
  Report Type: 
  Country: US (occurrence: US)
  Receive Date: 20120904
  Receipt Date: 20120904
  Transmission Date: 20130627
  Serious: Yes (Hospitalization)
  Sender: FDA-Public Use
  Company Number: US-009507513-1208USA011850

PATIENT

DRUGS (1)
  1. SINEMET [Suspect]
     Indication: PARKINSON^S DISEASE
     Dosage: 1 DF, qd:2/3 hours
     Dates: start: 2008

REACTIONS (2)
  - Dependence [Recovered/Resolved]
  - Overdose [Unknown]
